FAERS Safety Report 13355339 (Version 1)
Quarter: 2017Q1

REPORT INFORMATION
  Report Type: Spontaneous
  Country: US (occurrence: US)
  Receive Date: 20170321
  Receipt Date: 20170321
  Transmission Date: 20170429
  Serious: Yes (Disabling)
  Sender: FDA-Public Use
  Company Number: None

PATIENT
  Age: 65 Year
  Sex: Female
  Weight: 49.03 kg

DRUGS (12)
  1. OMEGA Q PLUS WITH RESERVATROL (DHA, EPA, COENZYME Q10) [Concomitant]
  2. VITAMIN D [Concomitant]
     Active Substance: CHOLECALCIFEROL
  3. VITAMIN E [Concomitant]
     Active Substance: .ALPHA.-TOCOPHEROL
  4. MAGNESIUM [Concomitant]
     Active Substance: MAGNESIUM
  5. TAURINE (AMINO ACID) [Concomitant]
  6. VITAMIN C [Concomitant]
     Active Substance: ASCORBIC ACID
  7. BRIVIACT [Suspect]
     Active Substance: BRIVARACETAM
     Indication: EPILEPSY
     Dosage: ?          QUANTITY:PIANISTS ?V M?S;?62^ ALLA;?
     Route: 048
  8. BRIVIACT [Suspect]
     Active Substance: BRIVARACETAM
     Indication: FRACTURE
     Dosage: ?          QUANTITY:PIANISTS ?V M?S;?62^ ALLA;?
     Route: 048
  9. SYNTHROID [Concomitant]
     Active Substance: LEVOTHYROXINE SODIUM
  10. ASTHMA MED [Concomitant]
  11. CHROMIUM [Concomitant]
     Active Substance: CHROMIC CHLORIDE\CHROMIUM
  12. MULTI-VIT [Concomitant]
     Active Substance: VITAMINS

REACTIONS (21)
  - Balance disorder [None]
  - Motor dysfunction [None]
  - Insomnia [None]
  - Product taste abnormal [None]
  - Dizziness [None]
  - Memory impairment [None]
  - Cognitive disorder [None]
  - Abdominal distension [None]
  - Malaise [None]
  - Headache [None]
  - Thermal burn [None]
  - Abdominal pain upper [None]
  - Mass [None]
  - Spider vein [None]
  - Fatigue [None]
  - Aphasia [None]
  - Stomatitis [None]
  - Nausea [None]
  - Gastrointestinal pain [None]
  - Osteopenia [None]
  - Condition aggravated [None]

NARRATIVE: CASE EVENT DATE: 20170202
